FAERS Safety Report 10079024 (Version 1)
Quarter: 2014Q2

REPORT INFORMATION
  Report Type: Spontaneous
  Country: GB (occurrence: GB)
  Receive Date: 20140415
  Receipt Date: 20140415
  Transmission Date: 20141212
  Serious: Yes (Other)
  Sender: FDA-Public Use
  Company Number: GB-JNJFOC-20140401202

PATIENT
  Age: 71 Year
  Sex: Male

DRUGS (1)
  1. CO-CODAMOL [Suspect]
     Indication: PRODUCT USED FOR UNKNOWN INDICATION
     Dates: start: 20140311

REACTIONS (2)
  - Hallucination [Recovered/Resolved]
  - Abnormal behaviour [Unknown]
